FAERS Safety Report 7670343-7 (Version None)
Quarter: 2011Q3

REPORT INFORMATION
  Report Type: 
  Country: None (occurrence: None)
  Receive Date: 20110809
  Receipt Date: 20110729
  Transmission Date: 20111222
  Serious: No
  Sender: FDA-Public Use
  Company Number: US-BIOGENIDEC-2011BI014520

PATIENT
  Sex: Female

DRUGS (1)
  1. TYSABRI [Suspect]
     Indication: MULTIPLE SCLEROSIS
     Route: 042
     Dates: start: 20100216

REACTIONS (7)
  - PAIN [None]
  - ARTHRALGIA [None]
  - CREPITATIONS [None]
  - MYALGIA [None]
  - HEADACHE [None]
  - JOINT CREPITATION [None]
  - FEELING ABNORMAL [None]
